FAERS Safety Report 8142444-0 (Version None)
Quarter: 2012Q1

REPORT INFORMATION
  Report Type: 
  Country: None (occurrence: None)
  Receive Date: 20120216
  Receipt Date: 20120208
  Transmission Date: 20120608
  Serious: Yes (Hospitalization)
  Sender: FDA-Public Use
  Company Number: CA-JNJFOC-20120205710

PATIENT
  Sex: Male
  Weight: 82.56 kg

DRUGS (6)
  1. METHOTREXATE [Concomitant]
  2. SIMPONI [Suspect]
     Indication: PSORIATIC ARTHROPATHY
     Route: 058
     Dates: start: 20100622, end: 20120102
  3. VOLTAREN-XR [Concomitant]
  4. SYNTHROID [Concomitant]
  5. VITALUX NOS [Concomitant]
  6. FOLIC ACID [Concomitant]

REACTIONS (1)
  - MYELITIS TRANSVERSE [None]
